FAERS Safety Report 24545830 (Version 3)
Quarter: 2025Q2

REPORT INFORMATION
  Report Type: Report from Study
  Country: KR (occurrence: KR)
  Receive Date: 20241024
  Receipt Date: 20250624
  Transmission Date: 20250716
  Serious: Yes (Other)
  Sender: ALEXION PHARMACEUTICALS
  Company Number: KR-AstraZeneca-2024A182838

PATIENT
  Age: 61 Year
  Weight: 50.6 kg

DRUGS (20)
  1. OLAPARIB [Suspect]
     Active Substance: OLAPARIB
     Indication: Ovarian cancer
     Dosage: 300 MILLIGRAM, BID
  2. OLAPARIB [Suspect]
     Active Substance: OLAPARIB
     Dosage: 250 MILLIGRAM, BID
  3. OLAPARIB [Suspect]
     Active Substance: OLAPARIB
     Dosage: 200 MILLIGRAM, BID
  4. OLAPARIB [Suspect]
     Active Substance: OLAPARIB
     Dosage: 200 MILLIGRAM, BID
  5. OLAPARIB [Suspect]
     Active Substance: OLAPARIB
     Dosage: 150 MILLIGRAM, BID
  6. Feroba you sr [Concomitant]
     Indication: Anaemia
  7. MAGNESIUM HYDROXIDE [Concomitant]
     Active Substance: MAGNESIUM HYDROXIDE
     Indication: Abdominal pain
  8. HERBALS [Concomitant]
     Active Substance: HERBALS
     Indication: Ileus
  9. Tacenol [Concomitant]
     Indication: Headache
  10. Duloctin [Concomitant]
     Indication: Anxiety
  11. FERINJECT [Concomitant]
     Active Substance: FERRIC CARBOXYMALTOSE
     Indication: Anaemia
  12. FERINJECT [Concomitant]
     Active Substance: FERRIC CARBOXYMALTOSE
  13. FERINJECT [Concomitant]
     Active Substance: FERRIC CARBOXYMALTOSE
  14. Ferromax [Concomitant]
     Indication: Anaemia
  15. SANCUSO [Concomitant]
     Active Substance: GRANISETRON
     Indication: Vomiting
  16. METOCLOPRAMIDE HYDROCHLORIDE [Concomitant]
     Active Substance: METOCLOPRAMIDE HYDROCHLORIDE
     Indication: Nausea
  17. RAMOSETRON HYDROCHLORIDE [Concomitant]
     Active Substance: RAMOSETRON HYDROCHLORIDE
     Indication: Prophylaxis
  18. Kerasyn [Concomitant]
     Indication: Abdominal pain
  19. Paceta [Concomitant]
     Indication: Abdominal pain
  20. Toranzin [Concomitant]
     Indication: Abdominal pain

REACTIONS (4)
  - Neutropenia [Recovered/Resolved]
  - Thrombocytopenia [Recovering/Resolving]
  - Leukopenia [Recovering/Resolving]
  - Anaemia [Recovering/Resolving]
